FAERS Safety Report 15740413 (Version 1)
Quarter: 2018Q4

REPORT INFORMATION
  Report Type: Spontaneous
  Country: US (occurrence: US)
  Receive Date: 20181204
  Receipt Date: 20181204
  Transmission Date: 20190205
  Serious: No
  Sender: FDA-Public Use
  Company Number: None

PATIENT
  Age: 70 Year
  Sex: Female
  Weight: 83.46 kg

DRUGS (4)
  1. LEUCOVORIN CALCIUM 5 MG TAB [Suspect]
     Active Substance: LEUCOVORIN CALCIUM
     Indication: RHEUMATOID ARTHRITIS
     Dosage: ?          OTHER FREQUENCY:PO 8-12 HOURS WEEK;?
     Route: 048
     Dates: start: 201309
  2. DICLOFENAC SODIUM GEL 1% [Suspect]
     Active Substance: DICLOFENAC SODIUM
     Indication: RHEUMATOID ARTHRITIS
     Route: 061
     Dates: start: 201612
  3. DICLOFENAC SODIUM GEL 1% [Suspect]
     Active Substance: DICLOFENAC SODIUM
     Indication: OSTEOARTHRITIS
  4. LEUCOVORIN CALCIUM 5MG TAB [Suspect]
     Active Substance: LEUCOVORIN CALCIUM
     Indication: OSTEOARTHRITIS

REACTIONS (3)
  - Nasopharyngitis [None]
  - Product dose omission [None]
  - Sinusitis [None]
